FAERS Safety Report 20406539 (Version 1)
Quarter: 2022Q1

REPORT INFORMATION
  Report Type: Spontaneous
  Country: US (occurrence: US)
  Receive Date: 20220131
  Receipt Date: 20220131
  Transmission Date: 20220423
  Serious: No
  Sender: FDA-Public Use
  Company Number: US-GW PHARMA-202201USGW00393

PATIENT

DRUGS (3)
  1. EPIDIOLEX [Suspect]
     Active Substance: CANNABIDIOL
     Indication: Lennox-Gastaut syndrome
     Dosage: 5.31 MG/KG/DAY, 100 MILLIGRAM, BID
     Route: 048
     Dates: start: 202106, end: 20220114
  2. EPIDIOLEX [Suspect]
     Active Substance: CANNABIDIOL
     Indication: Status epilepticus
     Dosage: 7.97 MG/KG/DAY, 150 MILLIGRAM, BID
     Route: 048
     Dates: start: 20220115, end: 20220123
  3. EPIDIOLEX [Suspect]
     Active Substance: CANNABIDIOL
     Dosage: 10.63 MG/KG/DAY, 200 MILLIGRAM, BID
     Route: 048
     Dates: start: 20220124

REACTIONS (1)
  - Seizure [Unknown]

NARRATIVE: CASE EVENT DATE: 20220115
